FAERS Safety Report 4577274-X (Version None)
Quarter: 2005Q1

REPORT INFORMATION
  Report Type: 
  Country: None (occurrence: None)
  Receive Date: 20050204
  Receipt Date: 20050125
  Transmission Date: 20050727
  Serious: Yes (Disabling, Other)
  Sender: FDA-Public Use
  Company Number: 200509242

PATIENT
  Age: 22 Year
  Sex: Male

DRUGS (2)
  1. MONOCLATE [Suspect]
     Indication: FACTOR VIII DEFICIENCY
     Dates: start: 19890101, end: 19890101
  2. ANTIHEMOPHILIC FACTOR (HUMAN) [Suspect]
     Indication: FACTOR VIII DEFICIENCY
     Dates: start: 19820101, end: 19890101

REACTIONS (1)
  - HEPATITIS C VIRUS [None]
